FAERS Safety Report 19352276 (Version 1)
Quarter: 2021Q2

REPORT INFORMATION
  Report Type: Spontaneous
  Country: US (occurrence: US)
  Receive Date: 20210601
  Receipt Date: 20210601
  Transmission Date: 20210717
  Serious: No
  Sender: FDA-Public Use
  Company Number: US-PFIZER INC-2021234908

PATIENT
  Age: 53 Year
  Sex: Female
  Weight: 58.97 kg

DRUGS (4)
  1. LYRICA [Suspect]
     Active Substance: PREGABALIN
     Dosage: 100 MG, THREE TIMES DAILY (TID)
     Route: 048
     Dates: start: 202011
  2. LYRICA [Suspect]
     Active Substance: PREGABALIN
     Indication: ELECTRIC SHOCK SENSATION
     Dosage: UNK, AS NEEDED
  3. LYRICA [Suspect]
     Active Substance: PREGABALIN
     Dosage: 7 DF (7 TABLETS)
  4. LYRICA [Suspect]
     Active Substance: PREGABALIN
     Indication: FIBROMYALGIA
     Dosage: 900 MG (9 CAPSULE)

REACTIONS (6)
  - Intentional product misuse [Unknown]
  - Pharyngeal mass [Unknown]
  - Drug ineffective [Unknown]
  - Feeling abnormal [Unknown]
  - Dizziness [Unknown]
  - Prescribed overdose [Unknown]
